FAERS Safety Report 14863058 (Version 1)
Quarter: 2018Q2

REPORT INFORMATION
  Report Type: Spontaneous
  Country: US (occurrence: US)
  Receive Date: 20180508
  Receipt Date: 20180508
  Transmission Date: 20180711
  Serious: Yes (Other)
  Sender: FDA-Public Use
  Company Number: US-ALKERMES INC.-ALK-2017-002154

PATIENT
  Age: 40 Year
  Sex: Male
  Weight: 74.83 kg

DRUGS (1)
  1. VIVITROL [Suspect]
     Active Substance: NALTREXONE
     Indication: DRUG DEPENDENCE
     Dosage: 380 MG, QMO
     Route: 030
     Dates: start: 20161028

REACTIONS (13)
  - Wrong technique in product usage process [Recovered/Resolved]
  - Injection site reaction [Recovered/Resolved]
  - Injection site abscess [Recovered/Resolved]
  - Injection site induration [Recovered/Resolved]
  - Injection site erythema [Recovered/Resolved]
  - Emotional disorder [Unknown]
  - Product preparation error [Recovered/Resolved]
  - Respiratory arrest [Recovered/Resolved]
  - Drug dose omission [Recovered/Resolved]
  - Overdose [Recovered/Resolved]
  - Injection site pain [Recovered/Resolved]
  - Suicidal ideation [Unknown]
  - Injection site swelling [Recovered/Resolved]

NARRATIVE: CASE EVENT DATE: 201611
